FAERS Safety Report 9089375 (Version 1)
Quarter: 2013Q1

REPORT INFORMATION
  Report Type: Report from Study
  Country: VE (occurrence: VE)
  Receive Date: 20130201
  Receipt Date: 20130201
  Transmission Date: 20140127
  Serious: Yes (Other)
  Sender: FDA-Public Use
  Company Number: VE-ABBOTT-13P-178-1041665-00

PATIENT
  Sex: Male
  Weight: 95 kg

DRUGS (2)
  1. HUMIRA [Suspect]
     Indication: PSORIASIS
     Route: 058
     Dates: start: 20110510, end: 201111
  2. HUMIRA [Suspect]
     Route: 058
     Dates: start: 201211

REACTIONS (2)
  - Tuberculin test positive [Recovering/Resolving]
  - Cough [Recovered/Resolved]
